FAERS Safety Report 8882005 (Version 2)
Quarter: 2012Q4

REPORT INFORMATION
  Report Type: Report from Study
  Country: JP (occurrence: JP)
  Receive Date: 20121102
  Receipt Date: 20121121
  Transmission Date: 20130627
  Serious: Yes (Hospitalization)
  Sender: FDA-Public Use
  Company Number: JP-PFIZER INC-2012234128

PATIENT
  Age: 78 Year
  Sex: Female
  Weight: 39 kg

DRUGS (7)
  1. VIVIANT [Suspect]
     Indication: OSTEOPOROSIS
     Dosage: 20 mg, 1x/day
     Route: 048
     Dates: start: 20110209
  2. NORVASC [Suspect]
     Indication: HYPERTENSION
     Dosage: 5 mg, 1x/day
     Route: 048
  3. EVISTA [Suspect]
     Indication: OSTEOPOROSIS
     Dosage: 60 mg, 1x/day
     Route: 048
     Dates: start: 20080222, end: 20110208
  4. ALFAROL [Suspect]
     Indication: OSTEOPOROSIS
     Dosage: 0.5 mg, 1x/day
     Route: 048
  5. KELNAC [Suspect]
     Indication: PROPHYLAXIS
     Dosage: 80 mg, 1x/day
     Route: 048
     Dates: start: 20110204
  6. INTEBAN [Suspect]
     Indication: LOW BACK PAIN
     Dosage: 25 mg, 1x/day
     Route: 048
     Dates: start: 20100204
  7. ASPARA [Suspect]
     Indication: OSTEOPOROSIS
     Dosage: 2 DF, 2x/day
     Route: 048

REACTIONS (2)
  - Colitis ischaemic [Recovered/Resolved]
  - Bedridden [None]
